FAERS Safety Report 9322606 (Version 1)
Quarter: 2013Q2

REPORT INFORMATION
  Report Type: Spontaneous
  Country: US (occurrence: US)
  Receive Date: 20130531
  Receipt Date: 20130531
  Transmission Date: 20140414
  Serious: No
  Sender: FDA-Public Use
  Company Number: US-ASTRAZENECA-2013SE33870

PATIENT
  Age: 52 Year
  Sex: Male

DRUGS (2)
  1. SEROQUEL [Suspect]
     Route: 048
  2. RISPERIDONE [Suspect]
     Route: 065

REACTIONS (4)
  - Vertigo [Unknown]
  - Nasal congestion [Unknown]
  - Adverse drug reaction [Unknown]
  - Drug withdrawal syndrome [Unknown]
